FAERS Safety Report 11835368 (Version 1)
Quarter: 2015Q4

REPORT INFORMATION
  Report Type: Spontaneous
  Country: US (occurrence: None)
  Receive Date: 20151214
  Receipt Date: 20151214
  Transmission Date: 20160305
  Serious: No
  Sender: FDA-Public Use
  Company Number: None

PATIENT
  Age: 43 Year
  Sex: Male
  Weight: 111.13 kg

DRUGS (4)
  1. VALERIAN [Concomitant]
     Active Substance: VALERIAN
  2. MULTIVITAMIN SUPPLEMENT [Concomitant]
  3. FISH OIL [Concomitant]
     Active Substance: FISH OIL
  4. TOLNAFTATE ANTIFUNGAL [Suspect]
     Active Substance: TOLNAFTATE
     Indication: RASH
     Dosage: SPRAY, APPLIED TO A SURFACE, USUALLY THE SKIN
     Dates: start: 20151203, end: 20151203

REACTIONS (6)
  - Pruritus [None]
  - Skin irritation [None]
  - Discomfort [None]
  - Insomnia [None]
  - Urticaria [None]
  - Erythema [None]

NARRATIVE: CASE EVENT DATE: 20151207
